FAERS Safety Report 17551149 (Version 1)
Quarter: 2020Q1

REPORT INFORMATION
  Report Type: Spontaneous
  Country: US (occurrence: US)
  Receive Date: 20200309
  Receipt Date: 20200309
  Transmission Date: 20200409
  Serious: Yes (Hospitalization)
  Sender: FDA-Public Use
  Company Number: None

PATIENT
  Age: 35 Year
  Sex: Female

DRUGS (20)
  1. METFORMIN [Concomitant]
     Active Substance: METFORMIN HYDROCHLORIDE
  2. GABAPENTIN. [Concomitant]
     Active Substance: GABAPENTIN
  3. SUCRALFATE. [Concomitant]
     Active Substance: SUCRALFATE
  4. VIT D [Concomitant]
     Active Substance: VITAMIN D NOS
  5. ARIPIPRAZOLEM BELVIQ XR [Concomitant]
  6. DEPO-SQ PRIN INJ [Concomitant]
  7. MEDROXYPR AC [Concomitant]
  8. TIZANIDINE. [Concomitant]
     Active Substance: TIZANIDINE
  9. AMITRIPTLIN [Concomitant]
  10. DULOXETINE. [Concomitant]
     Active Substance: DULOXETINE
  11. FLUOXETINE [Concomitant]
     Active Substance: FLUOXETINE HYDROCHLORIDE
  12. MELOXICAM. [Concomitant]
     Active Substance: MELOXICAM
  13. NALTREXONE [Concomitant]
     Active Substance: NALTREXONE
  14. HUMIRA [Suspect]
     Active Substance: ADALIMUMAB
     Indication: RHEUMATOID ARTHRITIS
     Route: 058
     Dates: start: 20190508
  15. CARBAMAZEPIN [Concomitant]
     Active Substance: CARBAMAZEPINE
  16. DILT-XR [Concomitant]
     Active Substance: DILTIAZEM
  17. OZEMPIC [Concomitant]
     Active Substance: SEMAGLUTIDE
  18. PANTOPRAZOLE [Concomitant]
     Active Substance: PANTOPRAZOLE
  19. FULFASALAZIN [Concomitant]
  20. TRAZODONE [Concomitant]
     Active Substance: TRAZODONE HYDROCHLORIDE

REACTIONS (6)
  - Fatigue [None]
  - Candida infection [None]
  - Sepsis [None]
  - Liver injury [None]
  - Therapy cessation [None]
  - Pain [None]

NARRATIVE: CASE EVENT DATE: 20200225
